FAERS Safety Report 10017134 (Version 1)
Quarter: 2014Q1

REPORT INFORMATION
  Report Type: Spontaneous
  Country: US (occurrence: US)
  Receive Date: 20140318
  Receipt Date: 20140318
  Transmission Date: 20141002
  Serious: No
  Sender: FDA-Public Use
  Company Number: US-009507513-1403USA004983

PATIENT
  Sex: Male

DRUGS (1)
  1. PEGINTRON [Suspect]
     Dosage: 120 MCG 1 STANDARD DOSE OF 1 REDIPEN

REACTIONS (3)
  - Underdose [Unknown]
  - Device malfunction [Unknown]
  - No adverse event [Unknown]
